FAERS Safety Report 7087738-5 (Version None)
Quarter: 2010Q4

REPORT INFORMATION
  Report Type: 
  Country: None (occurrence: None)
  Receive Date: 20101108
  Receipt Date: 20101029
  Transmission Date: 20110411
  Serious: No
  Sender: FDA-Public Use
  Company Number: 2007BI017451

PATIENT
  Age: 50 Year
  Sex: Female

DRUGS (3)
  1. TYSABRI [Suspect]
     Indication: MULTIPLE SCLEROSIS
     Route: 042
     Dates: start: 20050117
  2. TYSABRI [Suspect]
     Route: 042
     Dates: start: 20060905, end: 20070619
  3. TYSABRI [Suspect]
     Route: 042
     Dates: start: 20091215

REACTIONS (1)
  - DRUG INEFFECTIVE [None]
